FAERS Safety Report 10608873 (Version 1)
Quarter: 2014Q4

REPORT INFORMATION
  Report Type: Spontaneous
  Country: US (occurrence: US)
  Receive Date: 20141125
  Receipt Date: 20141125
  Transmission Date: 20150529
  Serious: Yes (Hospitalization)
  Sender: FDA-Public Use
  Company Number: US-GILEAD-2014-0124194

PATIENT
  Age: 59 Year
  Sex: Female

DRUGS (13)
  1. DILTIAZEM HCL [Concomitant]
     Active Substance: DILTIAZEM HYDROCHLORIDE
  2. POTASSIUM CHLORIDE. [Concomitant]
     Active Substance: POTASSIUM CHLORIDE
  3. TRAMADOL HYDROCHLORIDE AND ACETAMINOPHEN [Concomitant]
     Active Substance: ACETAMINOPHEN\TRAMADOL HYDROCHLORIDE
  4. ASPIRIN                            /00002701/ [Concomitant]
     Active Substance: ASPIRIN
  5. COUMADIN [Concomitant]
     Active Substance: WARFARIN SODIUM
  6. GABAPENTIN. [Concomitant]
     Active Substance: GABAPENTIN
  7. LORATADINE. [Concomitant]
     Active Substance: LORATADINE
  8. HYDROXYQUINOLINE SULFATE [Concomitant]
  9. SIMVASTATIN. [Concomitant]
     Active Substance: SIMVASTATIN
  10. CELEBREX [Concomitant]
     Active Substance: CELECOXIB
  11. MELOXICAM. [Concomitant]
     Active Substance: MELOXICAM
  12. LETAIRIS [Suspect]
     Active Substance: AMBRISENTAN
     Indication: PRODUCT USED FOR UNKNOWN INDICATION
     Dosage: 5 MG, QD
     Route: 065
     Dates: start: 20111228
  13. DIOVAN HCT [Concomitant]
     Active Substance: HYDROCHLOROTHIAZIDE\VALSARTAN

REACTIONS (3)
  - Blood potassium decreased [Recovered/Resolved]
  - Dizziness [Recovered/Resolved]
  - Hot flush [Recovered/Resolved]
